FAERS Safety Report 5227305-9 (Version None)
Quarter: 2007Q1

REPORT INFORMATION
  Report Type: 
  Country: None (occurrence: None)
  Receive Date: 20070202
  Receipt Date: 20070126
  Transmission Date: 20070707
  Serious: Yes (Other)
  Sender: FDA-Public Use
  Company Number: US-AVENTIS-200614984US

PATIENT
  Sex: Male
  Weight: 93 kg

DRUGS (6)
  1. LANTUS [Suspect]
     Dates: start: 20050201
  2. HUMALOG [Concomitant]
     Dosage: DOSE: UNK
  3. NORVASC [Concomitant]
     Dosage: DOSE: UNK
  4. COZAAR [Concomitant]
     Dosage: DOSE: UNK
  5. ZOCOR [Concomitant]
     Dosage: DOSE: UNK
  6. VIAGRA                             /01367501/ [Concomitant]
     Dosage: DOSE: UNK

REACTIONS (13)
  - BLOOD GLUCOSE DECREASED [None]
  - BLOOD GLUCOSE INCREASED [None]
  - DISCOMFORT [None]
  - DIZZINESS [None]
  - FALL [None]
  - FEELING ABNORMAL [None]
  - HYPERHIDROSIS [None]
  - INSOMNIA [None]
  - MALAISE [None]
  - NAUSEA [None]
  - NERVOUSNESS [None]
  - SNORING [None]
  - SYNCOPE [None]
